FAERS Safety Report 10379365 (Version 1)
Quarter: 2014Q3

REPORT INFORMATION
  Report Type: Spontaneous
  Country: FR (occurrence: FR)
  Receive Date: 20140812
  Receipt Date: 20140812
  Transmission Date: 20150326
  Serious: Yes (Hospitalization)
  Sender: FDA-Public Use
  Company Number: FR-PFIZER INC-2014223853

PATIENT
  Sex: Female

DRUGS (6)
  1. ALDACTONE [Suspect]
     Active Substance: SPIRONOLACTONE
     Dosage: 25 MG, DAILY
  2. IMUREL [Concomitant]
     Active Substance: AZATHIOPRINE SODIUM
     Dosage: 150 MG, DAILY
     Dates: end: 20140607
  3. ALDACTONE [Suspect]
     Active Substance: SPIRONOLACTONE
     Dosage: 40 MG, 1X/DAY
  4. ENTOCORT [Concomitant]
     Active Substance: BUDESONIDE
     Dosage: 3 MG, DAILY
  5. NEORAL [Concomitant]
     Active Substance: CYCLOSPORINE
     Dosage: 60 MG, DAILY
  6. NEORAL [Concomitant]
     Active Substance: CYCLOSPORINE
     Dosage: 0.6 ML, 2X/DAY

REACTIONS (2)
  - General physical health deterioration [Unknown]
  - Hepatocellular injury [Unknown]

NARRATIVE: CASE EVENT DATE: 201406
